FAERS Safety Report 10177457 (Version 2)
Quarter: 2014Q2

REPORT INFORMATION
  Report Type: Report from Study
  Country: CN (occurrence: CN)
  Receive Date: 20140516
  Receipt Date: 20140528
  Transmission Date: 20141212
  Serious: Yes (Death)
  Sender: FDA-Public Use
  Company Number: PHHY2014CN059515

PATIENT
  Sex: Male

DRUGS (1)
  1. TASIGNA [Suspect]
     Indication: CHRONIC MYELOID LEUKAEMIA
     Dosage: 800 MG, QD
     Route: 048

REACTIONS (5)
  - Malignant neoplasm progression [Fatal]
  - Blast crisis in myelogenous leukaemia [Unknown]
  - Anaemia [Unknown]
  - Haemorrhage [Unknown]
  - Pyrexia [Unknown]
